FAERS Safety Report 9405857 (Version 2)
Quarter: 2014Q1

REPORT INFORMATION
  Report Type: Spontaneous
  Country: US (occurrence: US)
  Receive Date: 20130717
  Receipt Date: 20140210
  Transmission Date: 20141002
  Serious: Yes (Hospitalization)
  Sender: FDA-Public Use
  Company Number: US-GLAXOSMITHKLINE-A1033243A

PATIENT
  Age: 49 Year
  Sex: Female
  Weight: 111.4 kg

DRUGS (1)
  1. AVANDIA [Suspect]
     Indication: DIABETES MELLITUS
     Dosage: 8MG PER DAY
     Route: 048
     Dates: start: 20040401, end: 200505

REACTIONS (4)
  - Myocardial infarction [Unknown]
  - Angina pectoris [Unknown]
  - Coronary artery disease [Unknown]
  - Electrocardiogram change [Unknown]
